FAERS Safety Report 4708263-X (Version None)
Quarter: 2005Q3

REPORT INFORMATION
  Report Type: 
  Country: None (occurrence: None)
  Receive Date: 20050707
  Receipt Date: 20031112
  Transmission Date: 20060218
  Serious: Yes (Hospitalization, Other)
  Sender: FDA-Public Use
  Company Number: A0439508A

PATIENT
  Age: 40 Year
  Sex: Female

DRUGS (4)
  1. BC HEADACHE POWDER [Suspect]
     Route: 048
  2. ALKA SELTZER PLUS NIGHTTIME COLD MEDICINE [Suspect]
     Route: 048
     Dates: start: 19991221
  3. TRIAMINIC SRT [Suspect]
     Route: 048
     Dates: start: 19991221
  4. BC SINUS COLD-PHENYLPROPANOLAMINE [Concomitant]
     Route: 048
     Dates: start: 19991221

REACTIONS (18)
  - AMNESIA [None]
  - ANEURYSM [None]
  - APHASIA [None]
  - CEREBRAL VENTRICLE DILATATION [None]
  - CONFUSIONAL STATE [None]
  - DIZZINESS [None]
  - ENCEPHALOMALACIA [None]
  - HEADACHE [None]
  - HEMIPARESIS [None]
  - HYPERTENSION [None]
  - LACUNAR INFARCTION [None]
  - MIGRAINE [None]
  - NAUSEA [None]
  - PHOTOSENSITIVITY REACTION [None]
  - SINUS BRADYCARDIA [None]
  - SUBARACHNOID HAEMORRHAGE [None]
  - VASOSPASM [None]
  - VOMITING [None]
